FAERS Safety Report 10249064 (Version 1)
Quarter: 2014Q2

REPORT INFORMATION
  Report Type: Spontaneous
  Country: US (occurrence: None)
  Receive Date: 20140522
  Receipt Date: 20140522
  Transmission Date: 20141212
  Serious: No
  Sender: FDA-Public Use
  Company Number: 1000065906

PATIENT
  Sex: Male

DRUGS (1)
  1. TUDORZA PRESSAIR (ACLIDINIUM BROMIDE) [Suspect]
     Dates: start: 201402, end: 201403

REACTIONS (2)
  - Oedema peripheral [None]
  - Generalised oedema [None]
